FAERS Safety Report 19373516 (Version 1)
Quarter: 2021Q2

REPORT INFORMATION
  Report Type: Spontaneous
  Country: US (occurrence: US)
  Receive Date: 20210604
  Receipt Date: 20210604
  Transmission Date: 20210717
  Serious: No
  Sender: FDA-Public Use
  Company Number: None

PATIENT
  Age: 76 Year
  Sex: Male

DRUGS (1)
  1. DOFETILIDE (DOFETILIDE 500MCG CAP, ) [Suspect]
     Active Substance: DOFETILIDE
     Indication: ATRIAL FIBRILLATION
     Dates: start: 20210315, end: 20210316

REACTIONS (1)
  - Tachycardia [None]

NARRATIVE: CASE EVENT DATE: 20210315
